FAERS Safety Report 5215455-2 (Version None)
Quarter: 2007Q1

REPORT INFORMATION
  Report Type: 
  Country: None (occurrence: None)
  Receive Date: 20070119
  Receipt Date: 20070119
  Transmission Date: 20070707
  Serious: Yes (Other)
  Sender: FDA-Public Use
  Company Number: None

PATIENT
  Sex: Male
  Weight: 60.2 kg

DRUGS (1)
  1. MAGNEVIST [Suspect]
     Indication: DIAGNOSTIC PROCEDURE
     Dosage: 30 CC  ONE TIME  IV BOLUS
     Route: 040
     Dates: start: 20060627, end: 20060627

REACTIONS (1)
  - NEPHROGENIC FIBROSING DERMOPATHY [None]
